FAERS Safety Report 7535741-0 (Version None)
Quarter: 2011Q2

REPORT INFORMATION
  Report Type: 
  Country: None (occurrence: None)
  Receive Date: 20110609
  Receipt Date: 20110526
  Transmission Date: 20111010
  Serious: Yes (Other)
  Sender: FDA-Public Use
  Company Number: IE-JNJFOC-20110306845

PATIENT
  Age: 53 Year
  Sex: Female

DRUGS (5)
  1. REMICADE [Suspect]
     Indication: PSORIATIC ARTHROPATHY
     Dosage: 4TH INFUSION
     Route: 042
     Dates: end: 20110310
  2. FOLIC ACID [Concomitant]
     Dosage: GIVEN FOR 3 YEARS AS OF MAY-2011
     Dates: start: 20080101
  3. METHOTREXATE [Concomitant]
  4. HYDROCORTISONE [Concomitant]
     Indication: PREMEDICATION
     Route: 065
  5. CLARITIN [Concomitant]
     Indication: PREMEDICATION
     Route: 065

REACTIONS (4)
  - INFUSION RELATED REACTION [None]
  - DYSPNOEA [None]
  - SYNCOPE [None]
  - ANAPHYLACTIC REACTION [None]
